FAERS Safety Report 21350104 (Version 1)
Quarter: 2022Q3

REPORT INFORMATION
  Report Type: Spontaneous
  Country: US (occurrence: None)
  Receive Date: 20220917
  Receipt Date: 20220917
  Transmission Date: 20221026
  Serious: Yes (Other)
  Sender: FDA-Public Use
  Company Number: None

PATIENT
  Age: 55 Year
  Sex: Female
  Weight: 85.5 kg

DRUGS (9)
  1. MELOXICAM [Suspect]
     Active Substance: MELOXICAM
     Indication: Swelling
     Dosage: OTHER QUANTITY : 30 TABLET(S);?FREQUENCY : DAILY;?
     Route: 048
     Dates: start: 20220812, end: 20220917
  2. MELOXICAM [Suspect]
     Active Substance: MELOXICAM
     Indication: Inflammation
  3. HYDROCHLOROTHIAZIDE\LISINOPRIL [Concomitant]
     Active Substance: HYDROCHLOROTHIAZIDE\LISINOPRIL
  4. SYNTHROID [Concomitant]
     Active Substance: LEVOTHYROXINE SODIUM
  5. DOXEPIN [Concomitant]
     Active Substance: DOXEPIN
  6. XANAX [Concomitant]
     Active Substance: ALPRAZOLAM
  7. CALAMINE LOTION [Concomitant]
     Active Substance: CALAMINE LOTION
  8. HYDROCORTISONE [Concomitant]
     Active Substance: HYDROCORTISONE
  9. FLUOCINONIDE [Concomitant]
     Active Substance: FLUOCINONIDE

REACTIONS (12)
  - Application site rash [None]
  - Cellulitis [None]
  - Ulcer [None]
  - Tenderness [None]
  - Skin warm [None]
  - Cold sweat [None]
  - Hyperhidrosis [None]
  - Pruritus [None]
  - Dermatitis contact [None]
  - Skin exfoliation [None]
  - Nausea [None]
  - Hypophagia [None]

NARRATIVE: CASE EVENT DATE: 20220907
